FAERS Safety Report 18773859 (Version 2)
Quarter: 2021Q1

REPORT INFORMATION
  Report Type: Spontaneous
  Country: JP (occurrence: JP)
  Receive Date: 20210122
  Receipt Date: 20210129
  Transmission Date: 20210419
  Serious: Yes (Hospitalization, Other)
  Sender: FDA-Public Use
  Company Number: JP-GLAXOSMITHKLINE-JP2021JPN011661

PATIENT
  Age: 56 Year
  Sex: Male

DRUGS (2)
  1. ACYCLOVIR. [Suspect]
     Active Substance: ACYCLOVIR
     Indication: HERPES ZOSTER INFECTION NEUROLOGICAL
     Dosage: 500 MG, TID
     Route: 041
  2. ACYCLOVIR. [Suspect]
     Active Substance: ACYCLOVIR
     Dosage: 500 MG, BID
     Route: 041

REACTIONS (6)
  - Euphoric mood [Unknown]
  - Chorea [Unknown]
  - Logorrhoea [Unknown]
  - Epilepsy [Recovering/Resolving]
  - Drug-induced liver injury [Unknown]
  - Abnormal behaviour [Unknown]
